FAERS Safety Report 20754985 (Version 1)
Quarter: 2022Q2

REPORT INFORMATION
  Report Type: Spontaneous
  Country: IT (occurrence: IT)
  Receive Date: 20220427
  Receipt Date: 20220427
  Transmission Date: 20220721
  Serious: Yes (Other)
  Sender: FDA-Public Use
  Company Number: None

PATIENT
  Age: 60 Year
  Sex: Female

DRUGS (1)
  1. LEMTRADA [Suspect]
     Active Substance: ALEMTUZUMAB
     Indication: Multiple sclerosis
     Dosage: 12 MG, QD
     Route: 042
     Dates: start: 20180214, end: 20180216

REACTIONS (2)
  - IIIrd nerve paralysis [Recovering/Resolving]
  - Endocrine ophthalmopathy [Recovering/Resolving]

NARRATIVE: CASE EVENT DATE: 20220110
